FAERS Safety Report 19060739 (Version 1)
Quarter: 2021Q1

REPORT INFORMATION
  Report Type: Spontaneous
  Country: NL (occurrence: NL)
  Receive Date: 20210326
  Receipt Date: 20210326
  Transmission Date: 20210420
  Serious: Yes (Disabling)
  Sender: FDA-Public Use
  Company Number: NL-TEVA-2021-NL-1893330

PATIENT
  Sex: Male
  Weight: 72 kg

DRUGS (4)
  1. METOPROLOL TABLET MGA  25MG (SUCCINAAT) / BRAND NAME NOT SPECIFIED [Concomitant]
     Active Substance: METOPROLOL SUCCINATE
     Dosage: 23.75MG,THERAPY START DATE :ASKU,THERAPY END DATE :ASKU
  2. MIRTAZAPINE / BRAND NAME NOT SPECIFIED [Concomitant]
     Dosage: 7.5 MILLIGRAM DAILY;  AT BEDTIME,THERAPY START DATE :ASKU,THERAPY END DATE :ASKU
  3. QUETIAPINE TABLET FO 25MG / QUETIAPINE TEVA TABLET FILMOMHULD 25MG [Suspect]
     Active Substance: QUETIAPINE FUMARATE
     Indication: AFFECTIVE DISORDER
     Dosage: UNIT DOSE: 50 MG,1 X 2 TABLETS BEFORE GOING TO SLEEP,THERAPY END DATE:ASKU
     Dates: start: 20210224
  4. MELATONINE TABLET 3MG / BRAND NAME NOT SPECIFIED [Concomitant]
     Dosage: 3 MILLIGRAM DAILY;  BEFORE GOING TO SLEEP,  THERAPY START DATE :ASKU,THERAPY END DATE :ASKU

REACTIONS (4)
  - Apathy [Not Recovered/Not Resolved]
  - Somnolence [Not Recovered/Not Resolved]
  - Depressed mood [Not Recovered/Not Resolved]
  - Therapeutic response unexpected [Unknown]
